FAERS Safety Report 23262107 (Version 1)
Quarter: 2023Q4

REPORT INFORMATION
  Report Type: Spontaneous
  Country: IT (occurrence: None)
  Receive Date: 20231205
  Receipt Date: 20231205
  Transmission Date: 20240110
  Serious: Yes (Other)
  Sender: FDA-Public Use
  Company Number: None

PATIENT
  Age: 47 Year
  Sex: Male

DRUGS (1)
  1. OCREVUS [Suspect]
     Active Substance: OCRELIZUMAB
     Indication: Multiple sclerosis
     Dosage: 600 MG EVERY 6 MONTHS
     Route: 065
     Dates: start: 20190506, end: 20230615

REACTIONS (2)
  - Neutropenia [Recovered/Resolved]
  - Pharyngitis bacterial [Recovered/Resolved]

NARRATIVE: CASE EVENT DATE: 20230801
